FAERS Safety Report 14169569 (Version 1)
Quarter: 2017Q4

REPORT INFORMATION
  Report Type: Spontaneous
  Country: IN (occurrence: IN)
  Receive Date: 20171108
  Receipt Date: 20171108
  Transmission Date: 20180321
  Serious: Yes (Other)
  Sender: FDA-Public Use
  Company Number: IN-MYLANLABS-2017M1069238

PATIENT
  Age: 38 Year
  Sex: Male

DRUGS (1)
  1. MAGNESIUM [Suspect]
     Active Substance: MAGNESIUM
     Indication: CHOLELITHIASIS
     Dosage: THREE TABLESPOONS WITH LUKEWARM WATER FOR 15 DAYS.
     Route: 065

REACTIONS (1)
  - Drug-induced liver injury [Recovered/Resolved]
